FAERS Safety Report 10063615 (Version 3)
Quarter: 2014Q2

REPORT INFORMATION
  Report Type: Report from Study
  Country: CA (occurrence: CA)
  Receive Date: 20140407
  Receipt Date: 20140416
  Transmission Date: 20141212
  Serious: Yes (Death, Hospitalization)
  Sender: FDA-Public Use
  Company Number: PHHY2014CA040429

PATIENT
  Sex: Male

DRUGS (2)
  1. SANDOSTATIN LAR [Suspect]
     Indication: NEUROENDOCRINE TUMOUR
     Dosage: 30 MG, EVERY 4 WEEKS
     Route: 030
     Dates: start: 20140328, end: 20140328
  2. SANDOSTATIN (OCTREOTIDE ACETATE) [Suspect]
     Indication: NEUROENDOCRINE TUMOUR
     Dosage: 50 UG, UNK
     Route: 058
     Dates: start: 20140326

REACTIONS (3)
  - Death [Fatal]
  - Disorientation [Unknown]
  - Speech disorder [Unknown]
